FAERS Safety Report 6251111-X (Version None)
Quarter: 2009Q2

REPORT INFORMATION
  Report Type: 
  Country: None (occurrence: None)
  Receive Date: 20090630
  Receipt Date: 20090619
  Transmission Date: 20091009
  Serious: Yes (Hospitalization, Other)
  Sender: FDA-Public Use
  Company Number: US-AMGEN-KDL268128

PATIENT
  Sex: Female

DRUGS (2)
  1. ENBREL [Suspect]
     Indication: PSORIATIC ARTHROPATHY
     Route: 058
     Dates: start: 20060410
  2. ENBREL [Suspect]
     Indication: PSORIASIS

REACTIONS (4)
  - INTESTINAL OBSTRUCTION [None]
  - NEUROPATHY PERIPHERAL [None]
  - UMBILICAL HERNIA [None]
  - VOMITING [None]
